FAERS Safety Report 8382621-7 (Version None)
Quarter: 2012Q2

REPORT INFORMATION
  Report Type: 
  Country: None (occurrence: None)
  Receive Date: 20120522
  Receipt Date: 20110510
  Transmission Date: 20120825
  Serious: Yes (Other)
  Sender: FDA-Public Use
  Company Number: 2011-02703

PATIENT

DRUGS (1)
  1. THERACYS [Suspect]
     Indication: PRODUCT USED FOR UNKNOWN INDICATION

REACTIONS (4)
  - DISORIENTATION [None]
  - ARTHRALGIA [None]
  - PYREXIA [None]
  - VISUAL IMPAIRMENT [None]
